FAERS Safety Report 4663422-X (Version None)
Quarter: 2005Q2

REPORT INFORMATION
  Report Type: 
  Country: None (occurrence: None)
  Receive Date: 20050513
  Receipt Date: 20050505
  Transmission Date: 20051028
  Serious: Yes (Death)
  Sender: FDA-Public Use
  Company Number: 163-20785-04100731

PATIENT
  Age: 77 Year
  Sex: Female

DRUGS (6)
  1. THALOMID [Suspect]
     Indication: MULTIPLE MYELOMA
     Dosage: 150 MG, DIALY, ORAL
     Route: 048
     Dates: start: 20040519, end: 20041130
  2. MULTIVITAMIN [Concomitant]
  3. ALLOPURINOL [Concomitant]
  4. TOPROL-XL [Concomitant]
  5. SYNTHROID [Concomitant]
  6. SPIRONOLACTONE [Concomitant]

REACTIONS (4)
  - FATIGUE [None]
  - MALIGNANT NEOPLASM PROGRESSION [None]
  - MULTIPLE MYELOMA [None]
  - T-CELL LYMPHOMA STAGE IV [None]
